FAERS Safety Report 4645062-1 (Version None)
Quarter: 2005Q2

REPORT INFORMATION
  Report Type: 
  Country: None (occurrence: None)
  Receive Date: 20050422
  Receipt Date: 20050415
  Transmission Date: 20051028
  Serious: Yes (Other)
  Sender: FDA-Public Use
  Company Number: 2004119361

PATIENT
  Age: 66 Year
  Sex: Female
  Weight: 67.1324 kg

DRUGS (5)
  1. NORVASC [Suspect]
     Indication: BLOOD PRESSURE
     Dosage: 5 MG (5 MG, 1 IN 1 D), ORAL
     Route: 048
     Dates: start: 20040101, end: 20050201
  2. BENADRYL [Suspect]
     Indication: PAIN
     Dosage: ORAL
     Route: 048
     Dates: start: 20041129
  3. LEVOTHYROXINE SODIUM [Concomitant]
  4. TRIAMTERENE (TRIAMTERENE) [Concomitant]
  5. ANTITHYROID PREPARATIONS (ANTITHYROID PREPARATIONS) [Concomitant]

REACTIONS (8)
  - BLOOD PRESSURE INCREASED [None]
  - BURNING SENSATION [None]
  - DYSPEPSIA [None]
  - ERYTHEMA [None]
  - FEELING ABNORMAL [None]
  - PAIN [None]
  - PHARMACEUTICAL PRODUCT COMPLAINT [None]
  - SWELLING FACE [None]
